FAERS Safety Report 4311539-1 (Version None)
Quarter: 2004Q1

REPORT INFORMATION
  Report Type: 
  Country: None (occurrence: None)
  Receive Date: 20040303
  Receipt Date: 20040303
  Transmission Date: 20041129
  Serious: Yes (Hospitalization)
  Sender: FDA-Public Use
  Company Number: None

PATIENT
  Age: 52 Year
  Sex: Male

DRUGS (1)
  1. DELAVIRDINE [Suspect]
     Indication: HIV INFECTION
     Dosage: 400 MG TID ORAL
     Route: 048
     Dates: start: 20031031, end: 20031111

REACTIONS (8)
  - HYPERSENSITIVITY [None]
  - HYPERTENSION [None]
  - INFECTION [None]
  - MENTAL STATUS CHANGES [None]
  - NAUSEA [None]
  - PYREXIA [None]
  - TACHYCARDIA [None]
  - VOMITING [None]
